FAERS Safety Report 19812186 (Version 1)
Quarter: 2021Q3

REPORT INFORMATION
  Report Type: Report from Study
  Country: AU (occurrence: AU)
  Receive Date: 20210909
  Receipt Date: 20210909
  Transmission Date: 20211014
  Serious: Yes (Disabling)
  Sender: FDA-Public Use
  Company Number: AU-KYOWAKIRIN-2021AKK014495

PATIENT

DRUGS (2)
  1. CHOLECALCIFEROL [Concomitant]
     Active Substance: CHOLECALCIFEROL
     Indication: VITAMIN D DEFICIENCY
     Dosage: 2000 IU
     Dates: start: 20210101
  2. BUROSUMAB [Suspect]
     Active Substance: BUROSUMAB
     Indication: HYPOPHOSPHATAEMIC OSTEOMALACIA
     Dosage: 80 MG
     Route: 058
     Dates: start: 20210726

REACTIONS (1)
  - Back pain [Not Recovered/Not Resolved]

NARRATIVE: CASE EVENT DATE: 20210801
